FAERS Safety Report 16263679 (Version 3)
Quarter: 2019Q3

REPORT INFORMATION
  Report Type: Spontaneous
  Country: JP (occurrence: JP)
  Receive Date: 20190502
  Receipt Date: 20190711
  Transmission Date: 20191004
  Serious: Yes (Hospitalization, Other)
  Sender: FDA-Public Use
  Company Number: JP-BRISTOL-MYERS SQUIBB COMPANY-BMS-2019-042247

PATIENT
  Age: 54 Year
  Sex: Female
  Weight: 48 kg

DRUGS (6)
  1. NAUZELIN [Concomitant]
     Active Substance: DOMPERIDONE
     Indication: GASTRIC CANCER
     Dosage: 10 MILLIGRAM, Q12H
     Route: 048
     Dates: start: 20181214
  2. REBAMIPIDE [Concomitant]
     Active Substance: REBAMIPIDE
     Indication: GASTRIC CANCER
     Dosage: 100 MILLIGRAM, Q12H
     Route: 048
     Dates: start: 20190201
  3. OPDIVO [Suspect]
     Active Substance: NIVOLUMAB
     Indication: GASTRIC CANCER
     Dosage: 240 MG, Q2W
     Route: 041
     Dates: start: 20190118, end: 2019
  4. OPDIVO [Suspect]
     Active Substance: NIVOLUMAB
     Indication: PRODUCT USED FOR UNKNOWN INDICATION
     Dosage: 240 MG, Q2W
     Route: 041
     Dates: start: 20190520
  5. TAKECAB [Concomitant]
     Active Substance: VONOPRAZAN FUMURATE
     Indication: GASTRIC CANCER
     Dosage: 10 MILLIGRAM, QD
     Route: 048
     Dates: start: 20190201
  6. LOXOPROFEN [Concomitant]
     Active Substance: LOXOPROFEN
     Indication: GASTRIC CANCER
     Dosage: 60 MILLIGRAM, Q12H
     Route: 048
     Dates: start: 20190201

REACTIONS (3)
  - Malaise [Recovered/Resolved]
  - Fulminant type 1 diabetes mellitus [Recovering/Resolving]
  - Thirst [Recovering/Resolving]

NARRATIVE: CASE EVENT DATE: 20190419
